FAERS Safety Report 4627670-7 (Version None)
Quarter: 2005Q2

REPORT INFORMATION
  Report Type: 
  Country: None (occurrence: None)
  Receive Date: 20050401
  Receipt Date: 20050328
  Transmission Date: 20051028
  Serious: Yes (Death)
  Sender: FDA-Public Use
  Company Number: 2005-BP-05074RO

PATIENT
  Age: 19 Year
  Sex: Male
  Weight: 81.6 kg

DRUGS (3)
  1. METHADONE HCL [Suspect]
     Dates: start: 20040613, end: 20040613
  2. HUMALOG INSULIN (INSULIN LISPRO) [Concomitant]
  3. LANTUS [Concomitant]

REACTIONS (10)
  - ACCIDENTAL DEATH [None]
  - ACCIDENTAL OVERDOSE [None]
  - BLOOD GLUCOSE INCREASED [None]
  - BLOOD POTASSIUM INCREASED [None]
  - BLOOD SODIUM DECREASED [None]
  - DRUG TOXICITY [None]
  - MULTI-ORGAN DISORDER [None]
  - PNEUMONIA [None]
  - PULMONARY CONGESTION [None]
  - PULMONARY OEDEMA [None]
